FAERS Safety Report 8881062 (Version 3)
Quarter: 2014Q3

REPORT INFORMATION
  Report Type: Spontaneous
  Country: US (occurrence: US)
  Receive Date: 20121101
  Receipt Date: 20140728
  Transmission Date: 20150326
  Serious: Yes (Hospitalization, Disabling, Other)
  Sender: FDA-Public Use
  Company Number: US-009507513-2012SP025954

PATIENT
  Sex: Female
  Weight: 60 kg

DRUGS (1)
  1. NUVARING [Suspect]
     Active Substance: ETHINYL ESTRADIOL\ETONOGESTREL
     Indication: CONTRACEPTION
     Dosage: UNK
     Dates: start: 2008, end: 2009

REACTIONS (25)
  - Nervous system disorder [Unknown]
  - Cardiac operation [Unknown]
  - Cough [Unknown]
  - Spinal fusion surgery [Unknown]
  - Arthritis [Unknown]
  - Heart rate irregular [Unknown]
  - Spinal column stenosis [Unknown]
  - Back disorder [Unknown]
  - Carotid artery aneurysm [Unknown]
  - Cerebrovascular accident [Not Recovered/Not Resolved]
  - Pulmonary embolism [Not Recovered/Not Resolved]
  - C-reactive protein increased [Unknown]
  - Narcolepsy [Unknown]
  - Road traffic accident [Unknown]
  - Haemoptysis [Unknown]
  - Sleep disorder [Unknown]
  - Respiratory tract congestion [Unknown]
  - Thrombosis [Unknown]
  - Back pain [Not Recovered/Not Resolved]
  - Coagulopathy [Unknown]
  - Oropharyngeal pain [Unknown]
  - Transient ischaemic attack [Unknown]
  - Arthralgia [Not Recovered/Not Resolved]
  - Intervertebral disc degeneration [Unknown]
  - Transient ischaemic attack [Unknown]

NARRATIVE: CASE EVENT DATE: 2008
